FAERS Safety Report 5216462-6 (Version None)
Quarter: 2007Q1

REPORT INFORMATION
  Report Type: 
  Country: None (occurrence: None)
  Receive Date: 20070118
  Receipt Date: 20070110
  Transmission Date: 20070707
  Serious: Yes (Hospitalization)
  Sender: FDA-Public Use
  Company Number: 234896

PATIENT
  Age: 81 Year
  Sex: Female

DRUGS (2)
  1. ACTIVASE [Suspect]
     Indication: INFARCTION
     Dosage: UNK
     Dates: start: 20050401
  2. MELPERONE (MELPERONE HYDROCHLORIDE) [Concomitant]

REACTIONS (4)
  - BRONCHOPNEUMONIA [None]
  - HEMIPARESIS [None]
  - PARANOIA [None]
  - SWOLLEN TONGUE [None]
